FAERS Safety Report 12929730 (Version 5)
Quarter: 2017Q1

REPORT INFORMATION
  Report Type: Spontaneous
  Country: PE (occurrence: PE)
  Receive Date: 20161110
  Receipt Date: 20170308
  Transmission Date: 20170428
  Serious: Yes (Hospitalization)
  Sender: FDA-Public Use
  Company Number: PE-SA-2016SA202134

PATIENT
  Sex: Female

DRUGS (4)
  1. INTERFERON BETA-1B [Concomitant]
     Active Substance: INTERFERON BETA-1B
  2. COPAXONE [Concomitant]
     Active Substance: GLATIRAMER ACETATE
  3. GILENYA [Concomitant]
     Active Substance: FINGOLIMOD HYDROCHLORIDE
  4. AUBAGIO [Suspect]
     Active Substance: TERIFLUNOMIDE
     Indication: MULTIPLE SCLEROSIS
     Route: 048
     Dates: start: 20160815, end: 20161102

REACTIONS (11)
  - Pyrexia [Not Recovered/Not Resolved]
  - Angioedema [Recovered/Resolved]
  - Skin mass [Not Recovered/Not Resolved]
  - Diarrhoea [Not Recovered/Not Resolved]
  - Rash vesicular [Recovered/Resolved]
  - Leukocytosis [Unknown]
  - Urticaria [Not Recovered/Not Resolved]
  - Hepatic enzyme increased [Recovering/Resolving]
  - Rash [Unknown]
  - Urticaria [Not Recovered/Not Resolved]
  - Vomiting [Not Recovered/Not Resolved]

NARRATIVE: CASE EVENT DATE: 2016
